FAERS Safety Report 25858284 (Version 1)
Quarter: 2025Q3

REPORT INFORMATION
  Report Type: Spontaneous
  Country: EU (occurrence: EU)
  Receive Date: 20250929
  Receipt Date: 20250929
  Transmission Date: 20251021
  Serious: Yes (Other)
  Sender: ABBVIE
  Company Number: None

PATIENT
  Age: 58 Year
  Sex: Female
  Weight: 62 kg

DRUGS (1)
  1. ADALIMUMAB [Suspect]
     Active Substance: ADALIMUMAB
     Indication: Crohn^s disease
     Dosage: INJVLST 100MG/ML / BRAND NAME?1 X PER 14 DAGEN 40 MG
     Route: 058
     Dates: start: 20170215, end: 202501

REACTIONS (1)
  - Malignant melanoma of sites other than skin [Not Recovered/Not Resolved]
